FAERS Safety Report 8309152-4 (Version None)
Quarter: 2012Q2

REPORT INFORMATION
  Report Type: 
  Country: None (occurrence: None)
  Receive Date: 20120424
  Receipt Date: 20120419
  Transmission Date: 20120825
  Serious: Yes (Hospitalization)
  Sender: FDA-Public Use
  Company Number: US-AMGEN-USASP2011034828

PATIENT
  Age: 48 Year
  Sex: Male

DRUGS (4)
  1. DILANTIN [Concomitant]
     Indication: CONVULSION
     Dosage: UNK
  2. ENBREL [Suspect]
     Indication: PSORIATIC ARTHROPATHY
     Dosage: 50 MG, QWK
     Route: 058
     Dates: start: 20101101, end: 20120101
  3. ENBREL [Suspect]
     Indication: PSORIASIS
     Dosage: 50 MG, QWK
     Dates: start: 20100101
  4. PHENOBARBITAL TAB [Concomitant]
     Indication: CONVULSION
     Dosage: UNK
     Route: 048

REACTIONS (6)
  - THERAPEUTIC RESPONSE DECREASED [None]
  - SKIN EXFOLIATION [None]
  - NEPHROLITHIASIS [None]
  - TENDON DISORDER [None]
  - HYPOAESTHESIA [None]
  - CELLULITIS [None]
